FAERS Safety Report 9256403 (Version 1)
Quarter: 2013Q2

REPORT INFORMATION
  Report Type: Report from Study
  Country: CN (occurrence: CN)
  Receive Date: 20130426
  Receipt Date: 20130426
  Transmission Date: 20140414
  Serious: Yes (Hospitalization)
  Sender: FDA-Public Use
  Company Number: CN-ROCHE-1215955

PATIENT
  Sex: Male

DRUGS (1)
  1. CEFTRIAXONE [Suspect]
     Indication: INFECTION
     Route: 041

REACTIONS (4)
  - Calculus urinary [Unknown]
  - Renal failure [Unknown]
  - Hydronephrosis [Unknown]
  - Cholelithiasis [Unknown]
